FAERS Safety Report 21956255 (Version 2)
Quarter: 2023Q1

REPORT INFORMATION
  Report Type: Spontaneous
  Country: US (occurrence: US)
  Receive Date: 20230206
  Receipt Date: 20230216
  Transmission Date: 20230418
  Serious: No
  Sender: FDA-Public Use
  Company Number: US-SA-SAC20230203000926

PATIENT
  Age: 43 Year
  Sex: Female
  Weight: 90 kg

DRUGS (2)
  1. DUPIXENT [Suspect]
     Active Substance: DUPILUMAB
     Indication: Dermatitis atopic
     Dosage: 600 MG 1X
     Route: 058
     Dates: start: 20230131, end: 20230131
  2. DUPIXENT [Suspect]
     Active Substance: DUPILUMAB
     Dosage: 300 MG QOW
     Route: 058

REACTIONS (2)
  - Injection site pain [Recovered/Resolved]
  - Fear of injection [Recovered/Resolved]

NARRATIVE: CASE EVENT DATE: 20230131
